FAERS Safety Report 6177608-9 (Version None)
Quarter: 2009Q2

REPORT INFORMATION
  Report Type: 
  Country: None (occurrence: None)
  Receive Date: 20090504
  Receipt Date: 20090430
  Transmission Date: 20091009
  Serious: No
  Sender: FDA-Public Use
  Company Number: US-B.I. PHARMACEUTICALS,INC./RIDGEFIELD-2009-BP-03883BP

PATIENT
  Age: 56 Year
  Sex: Male
  Weight: 69.9 kg

DRUGS (7)
  1. SPIRIVA [Suspect]
     Indication: CHRONIC OBSTRUCTIVE PULMONARY DISEASE
     Dosage: 18MCG
     Dates: start: 20080702, end: 20090217
  2. ZOLOFT [Concomitant]
     Dosage: 50MG
     Dates: start: 20090115
  3. TOPAMAX [Concomitant]
     Dosage: 100MG
     Dates: start: 20090310
  4. OMEPRAZOLE [Concomitant]
     Dosage: 20MG
     Dates: start: 20081101
  5. ADVAIR HFA [Concomitant]
     Dates: start: 20080301
  6. PRIMIDONE [Concomitant]
     Dosage: 100MG
     Dates: start: 20080401
  7. PROAIR HFA [Concomitant]
     Dates: start: 20080201

REACTIONS (3)
  - CANDIDIASIS [None]
  - PHARYNGITIS [None]
  - THROAT IRRITATION [None]
